FAERS Safety Report 6390591-6 (Version None)
Quarter: 2009Q4

REPORT INFORMATION
  Report Type: 
  Country: None (occurrence: None)
  Receive Date: 20091006
  Receipt Date: 20091001
  Transmission Date: 20100525
  Serious: Yes (Hospitalization, Other)
  Sender: FDA-Public Use
  Company Number: JP-ROXANE LABORATORIES, INC.-2009-RO-01024RO

PATIENT
  Age: 76 Year
  Sex: Male
  Weight: 58 kg

DRUGS (12)
  1. LITHIUM CARBONATE [Suspect]
     Indication: BIPOLAR I DISORDER
     Dosage: 400 MG
     Route: 048
     Dates: end: 20070226
  2. IMIDAPRIL HYDROCHLORIDE [Suspect]
     Dosage: 5 MG
     Route: 048
     Dates: start: 20070120, end: 20070226
  3. LOSARTAN POTASSIUM [Suspect]
     Dosage: 50 MG
     Route: 048
     Dates: end: 20070226
  4. CARBAMAZEPINE [Suspect]
     Dosage: 200 MG
     Route: 048
     Dates: end: 20070226
  5. BIPERIDEN HYDROCHLORIDE [Suspect]
     Dosage: 2 MG
     Route: 048
     Dates: end: 20070226
  6. NITRAZEPAM [Suspect]
     Dosage: 5 MG
     Route: 048
     Dates: end: 20070226
  7. VALPROATE SODIUM [Suspect]
     Dosage: 200 MG
     Route: 048
     Dates: end: 20070226
  8. SALINE [Concomitant]
     Indication: HYPONATRAEMIA
     Dosage: 1000 ML
     Route: 042
     Dates: start: 20070226
  9. SALINE [Concomitant]
     Dosage: 500 ML
     Route: 042
     Dates: end: 20070319
  10. FUROSEMIDE [Concomitant]
     Indication: POLYURIA
     Dosage: 40 MG
     Route: 042
     Dates: start: 20070226
  11. FUROSEMIDE [Concomitant]
     Dosage: 20 MG
     Route: 042
  12. OXYGEN [Concomitant]

REACTIONS (17)
  - ATRIAL FIBRILLATION [None]
  - BLOOD CREATININE INCREASED [None]
  - BLOOD UREA INCREASED [None]
  - BRADYCARDIA [None]
  - BUNDLE BRANCH BLOCK RIGHT [None]
  - DRUG INTERACTION [None]
  - DYSPHAGIA [None]
  - DYSPNOEA [None]
  - GAIT DISTURBANCE [None]
  - HYPONATRAEMIA [None]
  - METABOLIC ACIDOSIS [None]
  - MUSCULAR WEAKNESS [None]
  - PULMONARY OEDEMA [None]
  - RENAL IMPAIRMENT [None]
  - THERAPEUTIC AGENT TOXICITY [None]
  - TREMOR [None]
  - VOMITING [None]
